FAERS Safety Report 7775026-0 (Version None)
Quarter: 2011Q3

REPORT INFORMATION
  Report Type: 
  Country: None (occurrence: None)
  Receive Date: 20110923
  Receipt Date: 20110919
  Transmission Date: 20111222
  Serious: Yes (Hospitalization, Other)
  Sender: FDA-Public Use
  Company Number: GR-ROCHE-776742

PATIENT

DRUGS (3)
  1. CAPECITABINE [Suspect]
     Indication: GASTRIC CANCER
     Route: 065
  2. OXALIPLATIN [Suspect]
     Indication: GASTRIC CANCER
     Route: 065
  3. DOCETAXEL [Suspect]
     Indication: GASTRIC CANCER
     Route: 065

REACTIONS (9)
  - PERICARDIAL EFFUSION [None]
  - PALMAR-PLANTAR ERYTHRODYSAESTHESIA SYNDROME [None]
  - FATIGUE [None]
  - NEUROTOXICITY [None]
  - NEUTROPENIA [None]
  - MUCOSAL INFLAMMATION [None]
  - DIARRHOEA [None]
  - PLEURAL EFFUSION [None]
  - ANAEMIA [None]
